FAERS Safety Report 5122476-7 (Version None)
Quarter: 2006Q4

REPORT INFORMATION
  Report Type: 
  Country: None (occurrence: None)
  Receive Date: 20061004
  Receipt Date: 20060920
  Transmission Date: 20070319
  Serious: Yes (Other)
  Sender: FDA-Public Use
  Company Number: 14857

PATIENT
  Age: 56 Year
  Sex: Male

DRUGS (7)
  1. METHOTREXATE [Suspect]
     Indication: ACUTE LYMPHOCYTIC LEUKAEMIA
  2. DEXAMETHASONE TAB [Suspect]
     Indication: ACUTE LYMPHOCYTIC LEUKAEMIA
  3. VINCRISTINE [Suspect]
     Indication: ACUTE LYMPHOCYTIC LEUKAEMIA
  4. CYTARABINE [Suspect]
     Indication: ACUTE LYMPHOCYTIC LEUKAEMIA
  5. CYCLOPHOSPHAMIDE [Suspect]
     Indication: ACUTE LYMPHOCYTIC LEUKAEMIA
  6. ADRIAMYCIN PFS [Suspect]
     Indication: ACUTE LYMPHOCYTIC LEUKAEMIA
  7. ARRANON [Suspect]
     Indication: ACUTE LYMPHOCYTIC LEUKAEMIA

REACTIONS (6)
  - ABNORMAL BEHAVIOUR [None]
  - ABULIA [None]
  - CONFUSIONAL STATE [None]
  - DISINHIBITION [None]
  - HYPOMANIA [None]
  - LEUKOENCEPHALOPATHY [None]
